FAERS Safety Report 23392912 (Version 1)
Quarter: 2024Q1

REPORT INFORMATION
  Report Type: Spontaneous
  Country: US (occurrence: US)
  Receive Date: 20240111
  Receipt Date: 20240111
  Transmission Date: 20240410
  Serious: No
  Sender: FDA-Public Use
  Company Number: US-NOVOPROD-1092973

PATIENT

DRUGS (1)
  1. RYBELSUS [Suspect]
     Active Substance: SEMAGLUTIDE
     Indication: Product used for unknown indication
     Dosage: UNK
     Route: 048

REACTIONS (6)
  - Weight loss poor [Unknown]
  - Malaise [Unknown]
  - Oral discomfort [Unknown]
  - Nausea [Unknown]
  - Dyspepsia [Unknown]
  - Blood glucose abnormal [Unknown]
